FAERS Safety Report 19690555 (Version 1)
Quarter: 2021Q3

REPORT INFORMATION
  Report Type: Spontaneous
  Country: US (occurrence: US)
  Receive Date: 20210812
  Receipt Date: 20210812
  Transmission Date: 20211014
  Serious: Yes (Hospitalization)
  Sender: FDA-Public Use
  Company Number: None

PATIENT
  Age: 66 Year
  Sex: Female
  Weight: 40.73 kg

DRUGS (4)
  1. METHOTREXATE. [Suspect]
     Active Substance: METHOTREXATE
     Dates: end: 20210719
  2. PREDNISONE. [Suspect]
     Active Substance: PREDNISONE
     Dates: end: 20210707
  3. MERCAPTOPURINE. [Suspect]
     Active Substance: MERCAPTOPURINE
     Dates: end: 20210719
  4. VINCRISTINE SULFATE. [Suspect]
     Active Substance: VINCRISTINE SULFATE
     Dates: end: 20210708

REACTIONS (6)
  - Pyrexia [None]
  - SARS-CoV-2 test positive [None]
  - Dyspnoea [None]
  - Dizziness [None]
  - COVID-19 pneumonia [None]
  - Fatigue [None]

NARRATIVE: CASE EVENT DATE: 20210802
